FAERS Safety Report 7074837-7 (Version None)
Quarter: 2010Q4

REPORT INFORMATION
  Report Type: 
  Country: None (occurrence: None)
  Receive Date: 20101029
  Receipt Date: 20101021
  Transmission Date: 20110411
  Serious: Yes (Hospitalization)
  Sender: FDA-Public Use
  Company Number: US-AMGEN-USASP2010001288

PATIENT

DRUGS (2)
  1. ENBREL [Suspect]
     Indication: RHEUMATOID ARTHRITIS
     Dates: start: 20040601
  2. METHOTREXATE (TREXALL) [Concomitant]
     Dates: start: 20080101

REACTIONS (3)
  - CAROTID ARTERY OCCLUSION [None]
  - MOBILITY DECREASED [None]
  - RHEUMATOID ARTHRITIS [None]
